FAERS Safety Report 6620670-7 (Version None)
Quarter: 2010Q1

REPORT INFORMATION
  Report Type: 
  Country: None (occurrence: None)
  Receive Date: 20100309
  Receipt Date: 20100301
  Transmission Date: 20100710
  Serious: Yes (Other)
  Sender: FDA-Public Use
  Company Number: US-AMGEN-QUU395990

PATIENT
  Sex: Female
  Weight: 79.5 kg

DRUGS (1)
  1. NPLATE [Suspect]
     Indication: IDIOPATHIC THROMBOCYTOPENIC PURPURA
     Dates: start: 20081001

REACTIONS (13)
  - ABDOMINAL PAIN UPPER [None]
  - ALOPECIA [None]
  - ARTHRITIS [None]
  - CROHN'S DISEASE [None]
  - DYSPEPSIA [None]
  - HAIR GROWTH ABNORMAL [None]
  - HAIR TEXTURE ABNORMAL [None]
  - MALAISE [None]
  - MUSCLE SPASMS [None]
  - PAIN IN EXTREMITY [None]
  - PLATELET COUNT DECREASED [None]
  - ROSACEA [None]
  - STRESS [None]
